FAERS Safety Report 10660771 (Version 2)
Quarter: 2015Q1

REPORT INFORMATION
  Report Type: Spontaneous
  Country: UY (occurrence: US)
  Receive Date: 20141217
  Receipt Date: 20150120
  Transmission Date: 20150720
  Serious: Yes (Other)
  Sender: FDA-Public Use
  Company Number: US-TEVA-528723USA

PATIENT
  Age: 54 Year
  Sex: Male
  Weight: 99.88 kg

DRUGS (4)
  1. VALIUM [Concomitant]
     Active Substance: DIAZEPAM
  2. SYNRIBO [Suspect]
     Active Substance: OMACETAXINE MEPESUCCINATE
     Indication: CHRONIC LEUKAEMIA
     Route: 065
     Dates: start: 201412
  3. SEROQUEL [Concomitant]
     Active Substance: QUETIAPINE FUMARATE
  4. DEPAKOTE [Concomitant]
     Active Substance: DIVALPROEX SODIUM

REACTIONS (14)
  - Dizziness postural [Recovered/Resolved]
  - Drug dose omission [Unknown]
  - Epistaxis [Unknown]
  - Dizziness [Unknown]
  - Platelet count decreased [Unknown]
  - Feeding disorder [Not Recovered/Not Resolved]
  - Productive cough [Unknown]
  - Haemorrhoids [Unknown]
  - Weight fluctuation [Not Recovered/Not Resolved]
  - Leukopenia [Unknown]
  - Dizziness [Recovered/Resolved]
  - Loss of consciousness [Recovered/Resolved]
  - Nausea [Recovered/Resolved]
  - Skin haemorrhage [Unknown]

NARRATIVE: CASE EVENT DATE: 20141204
